FAERS Safety Report 11911354 (Version 2)
Quarter: 2016Q1

REPORT INFORMATION
  Report Type: Spontaneous
  Country: US (occurrence: US)
  Receive Date: 20160112
  Receipt Date: 20160307
  Transmission Date: 20160526
  Serious: Yes (Other)
  Sender: FDA-Public Use
  Company Number: US-GILEAD-2016-0191571

PATIENT
  Sex: Male
  Weight: 114 kg

DRUGS (19)
  1. EPZICOM [Concomitant]
     Active Substance: ABACAVIR SULFATE\LAMIVUDINE
  2. ACYCLOVIR                          /00587301/ [Concomitant]
     Active Substance: ACYCLOVIR
  3. HYGROTON [Concomitant]
     Active Substance: CHLORTHALIDONE
  4. VITAMIN D                          /00107901/ [Concomitant]
     Active Substance: ERGOCALCIFEROL
  5. HARVONI [Suspect]
     Active Substance: LEDIPASVIR\SOFOSBUVIR
     Indication: HEPATITIS C
     Dosage: UNK
     Route: 065
     Dates: start: 20151115, end: 20160104
  6. CLONOPIN [Concomitant]
     Active Substance: CLONAZEPAM
  7. TRACE MINERALS [Concomitant]
  8. ALTACE [Concomitant]
     Active Substance: RAMIPRIL
  9. CELEXA [Concomitant]
     Active Substance: CITALOPRAM HYDROBROMIDE
  10. ATROVENT [Concomitant]
     Active Substance: IPRATROPIUM BROMIDE
  11. ISENTRESS [Concomitant]
     Active Substance: RALTEGRAVIR POTASSIUM
  12. HYDRALAZINE [Concomitant]
     Active Substance: HYDRALAZINE HYDROCHLORIDE
  13. OXYCODONE [Concomitant]
     Active Substance: OXYCODONE
  14. MIRALAX [Concomitant]
     Active Substance: POLYETHYLENE GLYCOL 3350
  15. ANDROGEL [Concomitant]
     Active Substance: TESTOSTERONE
  16. TOPAMAX [Concomitant]
     Active Substance: TOPIRAMATE
  17. ATORVASTATIN [Concomitant]
     Active Substance: ATORVASTATIN
  18. GABAPENTIN. [Concomitant]
     Active Substance: GABAPENTIN
  19. ASPIRIN                            /00002701/ [Concomitant]
     Active Substance: ASPIRIN

REACTIONS (3)
  - Drug ineffective [Unknown]
  - Hepatitis C [Unknown]
  - Bradycardia [Unknown]

NARRATIVE: CASE EVENT DATE: 20151215
